FAERS Safety Report 7006401-X (Version None)
Quarter: 2010Q3

REPORT INFORMATION
  Report Type: 
  Country: None (occurrence: None)
  Receive Date: 20100909
  Receipt Date: 20100831
  Transmission Date: 20110219
  Serious: Yes (Hospitalization)
  Sender: FDA-Public Use
  Company Number: 2010SP046955

PATIENT
  Age: 58 Year
  Sex: Male
  Weight: 73 kg

DRUGS (2)
  1. PEG-INTRON [Suspect]
     Indication: HEPATITIS C
     Dosage: 30 MCG;QW
     Dates: start: 20090513
  2. RIBAVIRIN [Suspect]
     Indication: HEPATITIS C
     Dosage: 1000 MG;QD
     Dates: start: 20090513

REACTIONS (5)
  - DRUG INTOLERANCE [None]
  - INSOMNIA [None]
  - PERIODIC LIMB MOVEMENT DISORDER [None]
  - SNORING [None]
  - SOMNOLENCE [None]
